FAERS Safety Report 4461675-4 (Version None)
Quarter: 2004Q3

REPORT INFORMATION
  Report Type: 
  Country: None (occurrence: None)
  Receive Date: 20040929
  Receipt Date: 20040923
  Transmission Date: 20050211
  Serious: Yes (Hospitalization)
  Sender: FDA-Public Use
  Company Number: 200417273US

PATIENT
  Age: 38 Year
  Sex: Male

DRUGS (3)
  1. ALLEGRA [Suspect]
     Dosage: DOSE: UNK
     Dates: start: 20040319
  2. CLARITIN-D [Concomitant]
     Indication: HEADACHE
     Dosage: DOSE: UNK
     Dates: start: 20040308, end: 20040309
  3. CLARITIN-D [Concomitant]
     Indication: SNEEZING
     Dosage: DOSE: UNK
     Dates: start: 20040308, end: 20040309

REACTIONS (10)
  - ANXIETY [None]
  - DIZZINESS [None]
  - DYSKINESIA [None]
  - DYSPNOEA [None]
  - GLOSSODYNIA [None]
  - HEART RATE INCREASED [None]
  - HYPOAESTHESIA [None]
  - PAIN IN JAW [None]
  - PANIC DISORDER [None]
  - TENSION [None]
